FAERS Safety Report 5719798-5 (Version None)
Quarter: 2008Q2

REPORT INFORMATION
  Report Type: 
  Country: None (occurrence: None)
  Receive Date: 20080425
  Receipt Date: 20080425
  Transmission Date: 20081010
  Serious: Yes (Hospitalization)
  Sender: FDA-Public Use
  Company Number: None

PATIENT
  Age: 77 Year
  Sex: Female

DRUGS (3)
  1. ZANAFLEX [Suspect]
  2. STELEVO [Suspect]
  3. SINEMET [Suspect]

REACTIONS (1)
  - ENCEPHALOPATHY [None]
